FAERS Safety Report 18439504 (Version 2)
Quarter: 2020Q4

REPORT INFORMATION
  Report Type: Report from Study
  Country: SA (occurrence: SA)
  Receive Date: 20201029
  Receipt Date: 20201102
  Transmission Date: 20210114
  Serious: No
  Sender: FDA-Public Use
  Company Number: SA-CELLTRION INC.-2019SA025392

PATIENT

DRUGS (19)
  1. REMSIMA [Suspect]
     Active Substance: INFLIXIMAB
     Dosage: 840 MG
     Route: 042
     Dates: start: 20190709, end: 20190709
  2. REMSIMA [Suspect]
     Active Substance: INFLIXIMAB
     Dosage: 840 MG
     Route: 042
     Dates: start: 20191027, end: 20191027
  3. HYDROCORTISONE. [Concomitant]
     Active Substance: HYDROCORTISONE
     Indication: PREMEDICATION
     Dosage: 100 MG (1 IN 1 D)
     Route: 040
     Dates: start: 20190611, end: 20190611
  4. HYDROCORTISONE. [Concomitant]
     Active Substance: HYDROCORTISONE
     Dosage: 100 MG (1 IN 1 D)
     Route: 040
     Dates: start: 20190709, end: 20190709
  5. REMSIMA [Suspect]
     Active Substance: INFLIXIMAB
     Indication: COLITIS ULCERATIVE
     Dosage: 825 MG EVERY 8 WEEKS (5 MG/KG)
     Route: 042
     Dates: start: 20190611, end: 20190611
  6. GRANISETRON [Concomitant]
     Active Substance: GRANISETRON
     Indication: VOMITING
  7. HYDROCORTISONE. [Concomitant]
     Active Substance: HYDROCORTISONE
     Dosage: 100 MG (1 IN 1 D)
     Route: 040
     Dates: start: 20191027, end: 20191027
  8. ACETAMINOPHEN. [Concomitant]
     Active Substance: ACETAMINOPHEN
     Indication: PREMEDICATION
     Dosage: 1000 MG (1 IN 1 D)
     Route: 048
     Dates: start: 20190611, end: 20190611
  9. DIPHENHYDRAMINE. [Concomitant]
     Active Substance: DIPHENHYDRAMINE
     Indication: PREMEDICATION
     Dosage: 25 MG (1 IN 1 D)
     Route: 048
     Dates: start: 20190611, end: 20190611
  10. ESOMEPRAZOLE. [Concomitant]
     Active Substance: ESOMEPRAZOLE MAGNESIUM
     Indication: GASTROOESOPHAGEAL REFLUX DISEASE
     Dosage: 40 MG (1 IN 1 D)
     Route: 048
     Dates: start: 20191124, end: 20191124
  11. REMSIMA [Suspect]
     Active Substance: INFLIXIMAB
     Dosage: 840 MG
     Route: 042
     Dates: start: 20191124, end: 20191124
  12. DIPHENHYDRAMINE. [Concomitant]
     Active Substance: DIPHENHYDRAMINE
     Dosage: 25 MG (1 IN 1 D)
     Route: 048
     Dates: start: 20191027, end: 20191027
  13. DIPHENHYDRAMINE. [Concomitant]
     Active Substance: DIPHENHYDRAMINE
     Dosage: 25 MG (1 IN 1 D)
     Route: 048
     Dates: start: 20190709, end: 20190709
  14. DIPHENHYDRAMINE. [Concomitant]
     Active Substance: DIPHENHYDRAMINE
     Dosage: 25 MG (1 IN 1 D)
     Route: 048
     Dates: start: 20191124, end: 20191124
  15. ACETAMINOPHEN. [Concomitant]
     Active Substance: ACETAMINOPHEN
     Dosage: 1000 MG (1 IN 1 D)
     Route: 048
     Dates: start: 20190709, end: 20190709
  16. ACETAMINOPHEN. [Concomitant]
     Active Substance: ACETAMINOPHEN
     Dosage: 1000 MG (1 IN 1 D)
     Route: 048
     Dates: start: 20191027, end: 20191027
  17. ACETAMINOPHEN. [Concomitant]
     Active Substance: ACETAMINOPHEN
     Dosage: 1000 MG (1 IN 1 D)
     Route: 048
     Dates: start: 20191124, end: 20191124
  18. HYDROCORTISONE. [Concomitant]
     Active Substance: HYDROCORTISONE
     Dosage: 100 MG (1 IN 1 D)
     Route: 040
     Dates: start: 20191124, end: 20191124
  19. GRANISETRON [Concomitant]
     Active Substance: GRANISETRON
     Indication: NAUSEA
     Dosage: 1/10 MG / ML, ONCE DAILY
     Route: 040
     Dates: start: 20190703, end: 20190703

REACTIONS (9)
  - Nausea [Recovered/Resolved]
  - Overdose [Unknown]
  - Mouth ulceration [Recovered/Resolved]
  - Decreased appetite [Recovered/Resolved]
  - Colonoscopy [Recovered/Resolved]
  - Diarrhoea [Recovered/Resolved]
  - Product use issue [Unknown]
  - Gastrooesophageal reflux disease [Recovered/Resolved]
  - Abdominal pain upper [Recovered/Resolved]

NARRATIVE: CASE EVENT DATE: 20190611
